FAERS Safety Report 8600321-2 (Version None)
Quarter: 2012Q3

REPORT INFORMATION
  Report Type: 
  Country: None (occurrence: None)
  Receive Date: 20120817
  Receipt Date: 20120806
  Transmission Date: 20120928
  Serious: Yes (Other)
  Sender: FDA-Public Use
  Company Number: JP-BRISTOL-MYERS SQUIBB COMPANY-16839292

PATIENT
  Age: 4 Year
  Sex: Male

DRUGS (6)
  1. THP-ADRIAMYCIN [Suspect]
     Indication: NEUROBLASTOMA
     Dosage: FOR DAY 1 ON DAY 3
  2. ALLOPURINOL [Concomitant]
     Indication: TUMOUR LYSIS SYNDROME
  3. DALTEPARIN SODIUM [Concomitant]
     Dosage: 1DF:75 UNITS/KG
     Route: 042
  4. CYCLOPHOSPHAMIDE [Suspect]
     Indication: NEUROBLASTOMA
     Dosage: FOR DAY 1 ON DAY 1
  5. VINCRISTINE [Suspect]
     Indication: NEUROBLASTOMA
     Dosage: FOR DAY 1 ON DAY 1
  6. CISPLATIN [Suspect]
     Indication: NEUROBLASTOMA
     Dosage: FOR DAY 5 ON DAY 1-5

REACTIONS (1)
  - HISTIOCYTOSIS HAEMATOPHAGIC [None]
